FAERS Safety Report 13081326 (Version 1)
Quarter: 2017Q1

REPORT INFORMATION
  Report Type: Report from Study
  Country: BR (occurrence: BR)
  Receive Date: 20170103
  Receipt Date: 20170103
  Transmission Date: 20170428
  Serious: Yes (Life-Threatening, Hospitalization, Other)
  Sender: FDA-Public Use
  Company Number: BR-BAYER-2016-244781

PATIENT
  Age: 49 Year
  Sex: Female

DRUGS (8)
  1. PARACETAMOL [Concomitant]
     Active Substance: ACETAMINOPHEN
     Indication: INFLUENZA
     Dosage: UNK
     Route: 048
     Dates: start: 2014, end: 201612
  2. TOPIRAMATE. [Concomitant]
     Active Substance: TOPIRAMATE
     Indication: PAIN PROPHYLAXIS
     Dosage: UNK
     Route: 048
     Dates: start: 20161217, end: 20161219
  3. ALIVIUM [Suspect]
     Active Substance: IBUPROFEN
     Indication: PAIN
     Dosage: UNK
     Dates: start: 201102, end: 201105
  4. DEPAKENE [Concomitant]
     Active Substance: VALPROIC ACID
     Indication: PAIN PROPHYLAXIS
     Dosage: UNK
     Route: 048
     Dates: start: 201211
  5. AMITRIPTYLINE [Concomitant]
     Active Substance: AMITRIPTYLINE
     Indication: PAIN MANAGEMENT
     Dosage: 1 DF, QD
     Route: 048
     Dates: start: 2012
  6. BETAFERON [Suspect]
     Active Substance: INTERFERON BETA-1B
     Indication: SECONDARY PROGRESSIVE MULTIPLE SCLEROSIS
     Dosage: 1 ML, Q3WK
     Dates: start: 201102
  7. DIPIRONA [Suspect]
     Active Substance: METAMIZOLE
  8. ANILIDES [Concomitant]
     Indication: INFLUENZA
     Dosage: UNK
     Route: 048
     Dates: start: 2014, end: 201612

REACTIONS (23)
  - Pain in extremity [Not Recovered/Not Resolved]
  - Drug interaction [Recovered/Resolved]
  - Anxiety [None]
  - Hospitalisation [None]
  - Multiple sclerosis relapse [None]
  - Pyrexia [Not Recovered/Not Resolved]
  - Pneumonitis [Not Recovered/Not Resolved]
  - Irritability [None]
  - Accident at home [None]
  - Gingival bleeding [None]
  - Anaphylactic shock [Recovered/Resolved]
  - Headache [Recovered/Resolved]
  - Cough [Not Recovered/Not Resolved]
  - Headache [None]
  - Drug dose omission [Not Recovered/Not Resolved]
  - Syncope [Recovered/Resolved]
  - Urinary tract infection [None]
  - Influenza [Not Recovered/Not Resolved]
  - Upper limb fracture [None]
  - Dyspnoea [Recovered/Resolved]
  - Headache [Not Recovered/Not Resolved]
  - Lung disorder [None]
  - Aggression [None]

NARRATIVE: CASE EVENT DATE: 201211
